FAERS Safety Report 7241578-2 (Version None)
Quarter: 2011Q1

REPORT INFORMATION
  Report Type: 
  Country: None (occurrence: None)
  Receive Date: 20110124
  Receipt Date: 20110112
  Transmission Date: 20110831
  Serious: Yes (Hospitalization)
  Sender: FDA-Public Use
  Company Number: US-MERCK-1007USA03395

PATIENT
  Age: 52 Year
  Sex: Female

DRUGS (3)
  1. FOSAMAX [Suspect]
     Indication: OSTEOPOROSIS
     Route: 048
     Dates: start: 19960501, end: 20010905
  2. PREMARIN [Concomitant]
     Route: 065
  3. FOSAMAX [Suspect]
     Route: 048
     Dates: start: 20010906, end: 20080401

REACTIONS (23)
  - PATHOLOGICAL FRACTURE [None]
  - CONTUSION [None]
  - SEBORRHOEIC KERATOSIS [None]
  - MYALGIA [None]
  - FOOT FRACTURE [None]
  - AMNESIA [None]
  - GENITAL HERPES [None]
  - BRONCHITIS [None]
  - VITAMIN D DEFICIENCY [None]
  - SPINAL OSTEOARTHRITIS [None]
  - PNEUMONIA [None]
  - LIMB INJURY [None]
  - ABDOMINAL PAIN UPPER [None]
  - MUSCULOSKELETAL PAIN [None]
  - STAPHYLOCOCCAL SKIN INFECTION [None]
  - FOLLICULITIS [None]
  - TOOTH FRACTURE [None]
  - NASAL CONGESTION [None]
  - ANXIETY [None]
  - ARTHROPATHY [None]
  - EAR PAIN [None]
  - ATROPHIC VULVOVAGINITIS [None]
  - OTITIS MEDIA [None]
